FAERS Safety Report 7767130-8 (Version None)
Quarter: 2011Q3

REPORT INFORMATION
  Report Type: 
  Country: None (occurrence: None)
  Receive Date: 20110922
  Receipt Date: 20100830
  Transmission Date: 20111222
  Serious: No
  Sender: FDA-Public Use
  Company Number: US-ASTRAZENECA-2007UW27727

PATIENT
  Age: 424 Month
  Sex: Female
  Weight: 115.2 kg

DRUGS (5)
  1. SEROQUEL [Suspect]
     Dosage: 100-300 MG
     Route: 048
     Dates: start: 20060901, end: 20071001
  2. SEROQUEL [Suspect]
     Indication: DEPRESSION
     Dosage: 300/ 600 MG
     Route: 048
     Dates: start: 20060901, end: 20071201
  3. RISPERDAL [Concomitant]
     Indication: DEPRESSION
     Dates: start: 20080101
  4. SEROQUEL [Suspect]
     Indication: ANXIETY
     Dosage: 300/ 600 MG
     Route: 048
     Dates: start: 20060901, end: 20071201
  5. SEROQUEL [Suspect]
     Dosage: 100-300 MG
     Route: 048
     Dates: start: 20060901, end: 20071001

REACTIONS (3)
  - DIABETIC COMPLICATION [None]
  - ILL-DEFINED DISORDER [None]
  - TYPE 2 DIABETES MELLITUS [None]
